FAERS Safety Report 8113104-7 (Version None)
Quarter: 2012Q1

REPORT INFORMATION
  Report Type: 
  Country: None (occurrence: None)
  Receive Date: 20120203
  Receipt Date: 20120130
  Transmission Date: 20120608
  Serious: Yes (Hospitalization, Other)
  Sender: FDA-Public Use
  Company Number: BR-ABBOTT-12P-020-0900135-00

PATIENT
  Sex: Female
  Weight: 75 kg

DRUGS (4)
  1. HYDROXYCHLOROQUINE SULFATE [Concomitant]
     Indication: RHEUMATOID ARTHRITIS
     Route: 048
  2. THIAMINE HCL [Concomitant]
     Indication: VITAMIN B COMPLEX DEFICIENCY
     Route: 048
  3. VITAMIN D [Concomitant]
     Indication: IMMUNODEFICIENCY
     Route: 048
     Dates: start: 20111201
  4. HUMIRA [Suspect]
     Indication: RHEUMATOID ARTHRITIS
     Route: 058
     Dates: start: 20070701

REACTIONS (1)
  - BASAL CELL CARCINOMA [None]
